FAERS Safety Report 5981861-1 (Version None)
Quarter: 2008Q4

REPORT INFORMATION
  Report Type: 
  Country: None (occurrence: None)
  Receive Date: 20081202
  Receipt Date: 20081121
  Transmission Date: 20090506
  Serious: Yes (Hospitalization)
  Sender: FDA-Public Use
  Company Number: WAES 0811USA03739

PATIENT
  Age: 76 Year
  Sex: Male
  Weight: 63.5036 kg

DRUGS (18)
  1. CAP VORINOSTAT UNK [Suspect]
     Indication: MESOTHELIOMA
     Dosage: 400 MG/ DAILY/ PO; 400 MG/ DAILY/ PO
     Route: 048
     Dates: start: 20081002, end: 20081015
  2. CAP VORINOSTAT UNK [Suspect]
     Indication: MESOTHELIOMA
     Dosage: 400 MG/ DAILY/ PO; 400 MG/ DAILY/ PO
     Route: 048
     Dates: start: 20081022, end: 20081104
  3. CAP SORAFENIB UNK [Suspect]
     Indication: MESOTHELIOMA
     Dosage: 400 MG/ BID/ PO
     Route: 048
     Dates: start: 20081002, end: 20081121
  4. COLACE [Concomitant]
  5. ENSURE [Concomitant]
  6. EUCERIN CREME [Concomitant]
  7. FLOMAX (MORNIFLUMATE) [Concomitant]
  8. HYDRODIURIL [Concomitant]
  9. NEXIUM [Concomitant]
  10. PRINIVIL [Concomitant]
  11. VICODIN [Concomitant]
  12. ZOCOR [Concomitant]
  13. ASCORBIC ACID [Concomitant]
  14. ASPIRIN [Concomitant]
  15. CYANOCOBALAMIN [Concomitant]
  16. IRON (UNSPECIFIED) [Concomitant]
  17. UBIDECARENONE [Concomitant]
  18. VITAMINS (UNSPECIFIED) [Concomitant]

REACTIONS (4)
  - ANAEMIA [None]
  - DYSPNOEA [None]
  - GAIT DISTURBANCE [None]
  - PULMONARY OEDEMA [None]
